FAERS Safety Report 12548796 (Version 1)
Quarter: 2016Q3

REPORT INFORMATION
  Report Type: Spontaneous
  Country: US (occurrence: None)
  Receive Date: 20160711
  Receipt Date: 20160711
  Transmission Date: 20161109
  Serious: Yes (Other)
  Sender: FDA-Public Use
  Company Number: None

PATIENT
  Age: 51 Year
  Sex: Male
  Weight: 86.18 kg

DRUGS (1)
  1. CETIRIZINE HCL 10 MG ALL DAY ALLERGY RELIEF [Suspect]
     Active Substance: CETIRIZINE HYDROCHLORIDE
     Indication: MULTIPLE ALLERGIES
     Route: 048
     Dates: start: 20140430, end: 20160701

REACTIONS (5)
  - Insomnia [None]
  - Depression [None]
  - Pruritus [None]
  - Skin exfoliation [None]
  - Withdrawal syndrome [None]

NARRATIVE: CASE EVENT DATE: 20160708
